FAERS Safety Report 4304844-6 (Version None)
Quarter: 2004Q1

REPORT INFORMATION
  Report Type: 
  Country: None (occurrence: None)
  Receive Date: 20040226
  Receipt Date: 20031219
  Transmission Date: 20041129
  Serious: No
  Sender: FDA-Public Use
  Company Number: US-GLAXOSMITHKLINE-A0443797A

PATIENT
  Age: 75 Year
  Sex: Female

DRUGS (3)
  1. WELLBUTRIN XL [Suspect]
     Indication: DEPRESSION
     Dosage: 450MG PER DAY
     Route: 048
     Dates: start: 20031101
  2. VALIUM [Concomitant]
  3. ZOLOFT [Concomitant]

REACTIONS (2)
  - ANOREXIA [None]
  - DRUG INEFFECTIVE [None]
